FAERS Safety Report 6188102-3 (Version None)
Quarter: 2009Q2

REPORT INFORMATION
  Report Type: 
  Country: None (occurrence: None)
  Receive Date: 20090511
  Receipt Date: 20090427
  Transmission Date: 20091009
  Serious: Yes (Other)
  Sender: FDA-Public Use
  Company Number: 000721

PATIENT
  Age: 81 Year
  Sex: Female

DRUGS (4)
  1. OMEPRAZOLE [Suspect]
     Indication: REFLUX OESOPHAGITIS
     Dosage: (40 MG, 40 MG DAILY ORAL)
     Route: 048
  2. MELOXICAM [Concomitant]
  3. PROCHLORPERAZINE MALEATE [Concomitant]
  4. DOCUSATE SODIUM [Concomitant]

REACTIONS (6)
  - ANOREXIA [None]
  - BLOOD CREATINE PHOSPHOKINASE INCREASED [None]
  - DERMATOMYOSITIS [None]
  - DRUG ERUPTION [None]
  - LETHARGY [None]
  - PYREXIA [None]
